FAERS Safety Report 9626397 (Version 1)
Quarter: 2013Q4

REPORT INFORMATION
  Report Type: Spontaneous
  Country: US (occurrence: US)
  Receive Date: 20131016
  Receipt Date: 20131016
  Transmission Date: 20140711
  Serious: No
  Sender: FDA-Public Use
  Company Number: US-BAYER-2013-125215

PATIENT
  Age: 44 Year
  Sex: Female
  Weight: 75 kg

DRUGS (3)
  1. ALEVE CAPLET [Suspect]
     Indication: LOCAL SWELLING
     Dosage: 1 DF, QD
     Route: 048
  2. ALEVE CAPLET [Suspect]
     Indication: INFLAMMATION
  3. MULTIVITAMIN [Concomitant]

REACTIONS (2)
  - Off label use [None]
  - Incorrect drug administration duration [None]
